FAERS Safety Report 8050493-6 (Version None)
Quarter: 2012Q1

REPORT INFORMATION
  Report Type: 
  Country: None (occurrence: None)
  Receive Date: 20120117
  Receipt Date: 20120110
  Transmission Date: 20120608
  Serious: Yes (Hospitalization)
  Sender: FDA-Public Use
  Company Number: US-US-EMD SERONO, INC.-7104456

PATIENT
  Sex: Male

DRUGS (3)
  1. REBIF [Suspect]
     Indication: MULTIPLE SCLEROSIS
     Route: 058
     Dates: start: 20111018
  2. HIGH BLOOD PRESSURE PILL [Concomitant]
     Indication: HYPERTENSION
  3. ESCITALOPRAM [Concomitant]

REACTIONS (3)
  - INJECTION SITE MASS [None]
  - INJECTION SITE INDURATION [None]
  - ARTHRITIS [None]
